FAERS Safety Report 17446845 (Version 2)
Quarter: 2020Q1

REPORT INFORMATION
  Report Type: Report from Study
  Country: IT (occurrence: IT)
  Receive Date: 20200221
  Receipt Date: 20200306
  Transmission Date: 20200409
  Serious: Yes (Hospitalization)
  Sender: FDA-Public Use
  Company Number: IT-ASTRAZENECA-2019SF40248

PATIENT
  Age: 70 Year
  Sex: Male

DRUGS (15)
  1. OBINUTUZUMAB. [Suspect]
     Active Substance: OBINUTUZUMAB
     Indication: CHRONIC LYMPHOCYTIC LEUKAEMIA STAGE 1
     Dosage: END OF STUDY TREATMENT1000.0MG ONCE/SINGLE ADMINISTRATION
     Route: 042
     Dates: start: 20170111, end: 20170111
  2. KALOIDON TIO2 [Concomitant]
     Indication: PROPHYLAXIS
     Dosage: AS REQUIRED
     Route: 065
     Dates: start: 20180530
  3. EMPAGLIFLOZIN [Concomitant]
     Active Substance: EMPAGLIFLOZIN
     Indication: DIABETES MELLITUS
     Route: 065
     Dates: start: 20190111
  4. ISONIAZIDE [Concomitant]
     Active Substance: ISONIAZID
     Indication: HYPERTENSION
     Route: 065
     Dates: start: 20160825
  5. BISOPROLOLO [Concomitant]
     Active Substance: BISOPROLOL FUMARATE
     Indication: PROPHYLAXIS
     Route: 065
     Dates: start: 20161019
  6. NADIFLOXACINA [Concomitant]
     Indication: NASAL CYST
     Route: 065
     Dates: start: 20190218
  7. ALFUZOSINA CLORIDRATO [Concomitant]
     Indication: BENIGN PROSTATIC HYPERPLASIA
     Route: 065
     Dates: start: 1995
  8. ACALABRUTINIB. [Suspect]
     Active Substance: ACALABRUTINIB
     Indication: CHRONIC LYMPHOCYTIC LEUKAEMIA STAGE 1
     Dosage: END OF STUDY TREATMENT
     Route: 048
     Dates: start: 20160427, end: 20190915
  9. OVIXAN [Concomitant]
     Indication: PROPHYLAXIS
     Route: 065
     Dates: start: 20190620
  10. TORVASTATIN [Concomitant]
     Indication: DYSLIPIDAEMIA
     Route: 065
     Dates: start: 1990
  11. FUROSEMIDE. [Concomitant]
     Active Substance: FUROSEMIDE
     Indication: OEDEMA
     Route: 065
     Dates: start: 201701
  12. OBINUTUZUMAB. [Suspect]
     Active Substance: OBINUTUZUMAB
     Indication: CHRONIC LYMPHOCYTIC LEUKAEMIA STAGE 1
     Dosage: 100.0MG ONCE/SINGLE ADMINISTRATION
     Route: 042
     Dates: start: 20160824, end: 20160824
  13. METFORMIN [Concomitant]
     Active Substance: METFORMIN HYDROCHLORIDE
     Indication: DIABETES MELLITUS
     Route: 065
     Dates: start: 20190111
  14. ACETYLSALICILIC ACID [Concomitant]
     Active Substance: ASPIRIN
     Indication: MYOCARDIAL INFARCTION
     Route: 065
     Dates: start: 2003
  15. ALLOPURINOLO [Concomitant]
     Active Substance: ALLOPURINOL
     Indication: PROPHYLAXIS
     Route: 065
     Dates: start: 20181115, end: 20200108

REACTIONS (1)
  - Thyroid cancer [Recovered/Resolved]

NARRATIVE: CASE EVENT DATE: 20190924
